FAERS Safety Report 4696403-0 (Version None)
Quarter: 2005Q2

REPORT INFORMATION
  Report Type: 
  Country: None (occurrence: None)
  Receive Date: 20050620
  Receipt Date: 20050609
  Transmission Date: 20051028
  Serious: Yes (Other)
  Sender: FDA-Public Use
  Company Number: HQWYE314601APR04

PATIENT
  Age: 60 Year
  Sex: Female

DRUGS (3)
  1. PREMPRO [Suspect]
     Indication: HORMONE REPLACEMENT THERAPY
     Dosage: ORAL
     Route: 048
  2. PREMARIN [Suspect]
     Indication: HORMONE REPLACEMENT THERAPY
     Dosage: ORAL
     Route: 048
  3. PROVERA [Suspect]
     Indication: HORMONE REPLACEMENT THERAPY
     Dosage: ORAL
     Route: 048

REACTIONS (9)
  - BREAST CANCER METASTATIC [None]
  - DIFFICULTY IN WALKING [None]
  - ILL-DEFINED DISORDER [None]
  - MEDIASTINAL MASS [None]
  - METASTASES TO BLADDER [None]
  - METASTASES TO BONE [None]
  - METASTASES TO SPINE [None]
  - METASTATIC NEOPLASM [None]
  - PAIN [None]
